FAERS Safety Report 25321581 (Version 2)
Quarter: 2025Q2

REPORT INFORMATION
  Report Type: Report from Study
  Country: US (occurrence: US)
  Receive Date: 20250516
  Receipt Date: 20250529
  Transmission Date: 20250716
  Serious: Yes (Other)
  Sender: JOHNSON AND JOHNSON
  Company Number: US-JNJFOC-20250505876

PATIENT
  Age: 57 Year
  Sex: Male

DRUGS (3)
  1. SPRAVATO [Suspect]
     Active Substance: ESKETAMINE
     Indication: Depression
     Route: 045
     Dates: start: 20250129, end: 20250129
  2. SPRAVATO [Suspect]
     Active Substance: ESKETAMINE
     Route: 045
     Dates: start: 20250131, end: 20250312
  3. SPRAVATO [Suspect]
     Active Substance: ESKETAMINE
     Route: 045
     Dates: start: 20250327, end: 20250327

REACTIONS (6)
  - Neoplasm malignant [Unknown]
  - Mental impairment [Unknown]
  - Neuropathy peripheral [Unknown]
  - Cerebrovascular accident [Unknown]
  - Depression [Unknown]
  - Product dose omission issue [Unknown]
